FAERS Safety Report 4449124-3 (Version None)
Quarter: 2004Q3

REPORT INFORMATION
  Report Type: 
  Country: None (occurrence: None)
  Receive Date: 20040909
  Receipt Date: 20040830
  Transmission Date: 20050211
  Serious: Yes (Hospitalization)
  Sender: FDA-Public Use
  Company Number: MEDI-0002187

PATIENT
  Age: 55 Year
  Sex: Male

DRUGS (3)
  1. ETHYOL [Suspect]
     Indication: RADIOTHERAPY
     Dosage: 500 MG, 5 IN 1 WK, SUBCUTANEOUS
     Route: 058
     Dates: start: 20040722, end: 20040802
  2. RADIATION THERAPY [Concomitant]
  3. CARBOPLATIN [Concomitant]

REACTIONS (8)
  - CONFUSIONAL STATE [None]
  - NEUROLOGICAL SYMPTOM [None]
  - PNEUMOCYSTIS CARINII PNEUMONIA [None]
  - PNEUMONIA STAPHYLOCOCCAL [None]
  - RENAL FAILURE [None]
  - RESPIRATORY FAILURE [None]
  - SEPSIS [None]
  - THROMBOTIC THROMBOCYTOPENIC PURPURA [None]
